FAERS Safety Report 11686628 (Version 1)
Quarter: 2015Q4

REPORT INFORMATION
  Report Type: Report from Study
  Country: US (occurrence: US)
  Receive Date: 20151030
  Receipt Date: 20151030
  Transmission Date: 20160304
  Serious: Yes (Hospitalization, Other)
  Sender: FDA-Public Use
  Company Number: US-AMGEN-USASL2015113110

PATIENT
  Age: 57 Year
  Sex: Female

DRUGS (1)
  1. SENSIPAR [Suspect]
     Active Substance: CINACALCET HYDROCHLORIDE
     Indication: PRODUCT USED FOR UNKNOWN INDICATION
     Dosage: 60 MG, EVERY NIGHT
     Route: 048

REACTIONS (6)
  - Spondylitis [Unknown]
  - Nerve compression [Unknown]
  - Intervertebral disc space narrowing [Unknown]
  - Pneumonia [Unknown]
  - Intervertebral disc protrusion [Unknown]
  - Drug dose omission [Unknown]

NARRATIVE: CASE EVENT DATE: 2015
